FAERS Safety Report 22238656 (Version 1)
Quarter: 2023Q2

REPORT INFORMATION
  Report Type: Report from Study
  Country: IT (occurrence: IT)
  Receive Date: 20230421
  Receipt Date: 20230421
  Transmission Date: 20230721
  Serious: Yes (Other)
  Sender: FDA-Public Use
  Company Number: None

PATIENT
  Age: 21 Year
  Sex: Female

DRUGS (9)
  1. AJOVY [Suspect]
     Active Substance: FREMANEZUMAB-VFRM
     Indication: Migraine
     Dosage: DOSAGE: 225, UNIT OF MEASUREMENT: MILLIGRAMS
     Route: 058
     Dates: start: 20220319, end: 20230116
  2. LEVOTHYROXINE SODIUM [Concomitant]
     Active Substance: LEVOTHYROXINE SODIUM
     Indication: Hypothyroidism
     Dosage: DOSAGE: 1/2, UNIT OF MEASURE: DOSING UNIT
     Route: 048
  3. CHOLECALCIFEROL [Concomitant]
     Active Substance: CHOLECALCIFEROL
     Indication: Vitamin D decreased
     Dosage: DOSAGE: 1, UNIT OF MEASUREMENT: DOSAGE UNIT
     Route: 048
  4. QUETIAPINE [Concomitant]
     Active Substance: QUETIAPINE
     Indication: Product used for unknown indication
     Dosage: DOSAGE: 50, UNIT OF MEASUREMENT: MILLIGRAMS
     Route: 048
  5. ESTRADIOL\NOMEGESTROL ACETATE [Concomitant]
     Active Substance: ESTRADIOL\NOMEGESTROL ACETATE
     Indication: Oral contraception
     Dosage: DOSAGE: 1, UNIT OF MEASUREMENT: DOSAGE UNIT
     Route: 048
  6. QUETIAPINE FUMARATE [Concomitant]
     Active Substance: QUETIAPINE FUMARATE
     Indication: Product used for unknown indication
     Dosage: DOSAGE: 50, UNIT OF MEASUREMENT: MILLIGRAMS
     Route: 048
  7. RIVOTRIL [Concomitant]
     Active Substance: CLONAZEPAM
     Indication: Product used for unknown indication
     Dosage: DOSAGE: 20, UNIT OF MEASUREMENT: DROPS
     Route: 048
  8. ESCITALOPRAM [Concomitant]
     Active Substance: ESCITALOPRAM OXALATE
     Indication: Product used for unknown indication
     Dosage: DOSAGE: 10, UNIT OF MEASUREMENT: MILLIGRAMS
     Route: 048
  9. MIRTAZAPINE [Concomitant]
     Active Substance: MIRTAZAPINE
     Indication: Product used for unknown indication
     Dosage: DOSAGE: 1, UNIT OF MEASUREMENT: DOSAGE UNIT
     Route: 048

REACTIONS (4)
  - Hypothyroidism [Unknown]
  - Vitamin D deficiency [Unknown]
  - Blood cholesterol increased [Unknown]
  - Asthenia [Recovering/Resolving]

NARRATIVE: CASE EVENT DATE: 20211231
